FAERS Safety Report 8766435 (Version 1)
Quarter: 2012Q4

REPORT INFORMATION
  Report Type: 
  Country: US (occurrence: US)
  Receive Date: 20120904
  Receipt Date: 20120904
  Transmission Date: 20130627
  Serious: Yes (Other)
  Sender: FDA-Public Use
  Company Number: US-ASTRAZENECA-2012SE61221

PATIENT
  Age: 49 Year
  Sex: Female
  Weight: 140.6 kg

DRUGS (16)
  1. NEXIUM [Suspect]
     Indication: GASTROOESOPHAGEAL REFLUX DISEASE
     Route: 048
     Dates: start: 2009, end: 201204
  2. NEXIUM [Suspect]
     Indication: DYSPEPSIA
     Route: 048
     Dates: start: 2009, end: 201204
  3. NEXIUM [Suspect]
     Indication: ABDOMINAL DISCOMFORT
     Route: 048
     Dates: start: 2009, end: 201204
  4. PRILOSEC [Suspect]
     Route: 048
  5. DIOVAN HCT [Concomitant]
     Dosage: 8/12.5 MG
  6. LIPITOR [Concomitant]
  7. METHIMAZOLE [Concomitant]
     Dosage: 2.5 TO 10 MG
  8. ATENOLOL [Concomitant]
  9. METFORMIN [Concomitant]
  10. DOXYCYCLINE [Concomitant]
     Indication: ARTHRITIS
  11. MULTIVITAMINS [Concomitant]
  12. COQ 10 [Concomitant]
  13. BABY ASPIRIN [Concomitant]
     Dosage: TWO LOW DOSES
  14. PROBIOTICS [Concomitant]
  15. VITAMIN D [Concomitant]
  16. MAGNESIUM [Concomitant]

REACTIONS (15)
  - Foot fracture [Unknown]
  - Osteoarthritis [Unknown]
  - Spinal osteoarthritis [Unknown]
  - Osteoarthritis [Unknown]
  - Osteoarthritis [Unknown]
  - Feeling abnormal [Unknown]
  - Exercise tolerance decreased [Unknown]
  - Posture abnormal [Unknown]
  - Gait disturbance [Unknown]
  - Sleep disorder due to general medical condition, insomnia type [Unknown]
  - Gastrooesophageal reflux disease [Unknown]
  - Aphagia [Unknown]
  - Abdominal discomfort [Unknown]
  - Drug ineffective [Unknown]
  - Drug dose omission [Unknown]
